FAERS Safety Report 5498096-1 (Version None)
Quarter: 2007Q4

REPORT INFORMATION
  Report Type: 
  Country: None (occurrence: None)
  Receive Date: 20071025
  Receipt Date: 20071019
  Transmission Date: 20080405
  Serious: Yes (Hospitalization)
  Sender: FDA-Public Use
  Company Number: HQWYE267321SEP07

PATIENT
  Sex: Male
  Weight: 89 kg

DRUGS (14)
  1. TEMSIROLIMUS [Suspect]
     Indication: LYMPHOMA
     Route: 042
     Dates: start: 20070705, end: 20070913
  2. TEMSIROLIMUS [Suspect]
     Route: 042
     Dates: start: 20071018
  3. SUCRALFATE [Concomitant]
     Indication: PROPHYLAXIS
     Route: 048
     Dates: start: 20070712
  4. CETIRIZINE HCL [Concomitant]
     Indication: PRURITUS
     Route: 048
     Dates: start: 20070830
  5. CORSODYL [Concomitant]
     Indication: PROPHYLAXIS
     Route: 048
     Dates: start: 20070712
  6. SPIRONOLACTONE [Concomitant]
     Indication: HYPERTENSION
     Route: 048
     Dates: start: 20020101, end: 20070928
  7. COENZYME Q10 [Concomitant]
     Dosage: 1 UNIT EVERY 1 DAY
     Route: 048
     Dates: start: 20020101
  8. DOXAZOSIN MESYLATE [Concomitant]
     Indication: HYPERTENSION
     Route: 048
     Dates: start: 20020101
  9. VALSARTAN [Concomitant]
     Indication: HYPERTENSION
     Route: 048
     Dates: start: 20020101
  10. METOCLOPRAMIDE [Concomitant]
     Indication: NAUSEA
     Route: 048
     Dates: start: 20070823
  11. LANSOPRAZOLE [Concomitant]
     Indication: DYSPEPSIA
     Route: 048
     Dates: start: 20070906
  12. GRANISETRON  HCL [Concomitant]
     Indication: NAUSEA
     Route: 048
     Dates: start: 20070906
  13. LEVOMEPROMAZINE [Concomitant]
     Indication: NAUSEA
     Dosage: UNKNOWN
     Dates: start: 20070705
  14. ATENOLOL [Concomitant]
     Indication: HYPERTENSION
     Route: 048
     Dates: start: 20020101

REACTIONS (2)
  - LETHARGY [None]
  - UPPER RESPIRATORY TRACT INFECTION [None]
